FAERS Safety Report 4510110-6 (Version None)
Quarter: 2004Q4

REPORT INFORMATION
  Report Type: 
  Country: None (occurrence: None)
  Receive Date: 20041124
  Receipt Date: 20041117
  Transmission Date: 20050328
  Serious: Yes (Other)
  Sender: FDA-Public Use
  Company Number: US-JNJFOC-20041104532

PATIENT
  Age: 46 Year
  Sex: Male

DRUGS (2)
  1. REMICADE [Suspect]
     Dosage: HAS HAD 12 INFUSIONS TO DATE
     Route: 042
  2. IMURAN [Concomitant]

REACTIONS (1)
  - HODGKIN'S DISEASE [None]
